FAERS Safety Report 21158031 (Version 1)
Quarter: 2022Q3

REPORT INFORMATION
  Report Type: Spontaneous
  Country: US (occurrence: US)
  Receive Date: 20220801
  Receipt Date: 20220801
  Transmission Date: 20221027
  Serious: No
  Sender: FDA-Public Use
  Company Number: US-KOWA PHARMACEUTICALS-2022KOW00004

PATIENT
  Sex: Female

DRUGS (1)
  1. SEGLENTIS [Suspect]
     Active Substance: CELECOXIB\TRAMADOL HYDROCHLORIDE
     Dosage: 2 TABLETS, TWICE

REACTIONS (2)
  - Tongue discomfort [Unknown]
  - Reaction to excipient [Unknown]
